FAERS Safety Report 10476804 (Version 5)
Quarter: 2015Q1

REPORT INFORMATION
  Report Type: Report from Study
  Country: AU (occurrence: AU)
  Receive Date: 20140925
  Receipt Date: 20150217
  Transmission Date: 20150720
  Serious: Yes (Hospitalization, Other)
  Sender: FDA-Public Use
  Company Number: AU-ROCHE-1461296

PATIENT
  Age: 52 Year
  Sex: Female
  Weight: 104 kg

DRUGS (1)
  1. ACTEMRA [Suspect]
     Active Substance: TOCILIZUMAB
     Indication: RHEUMATOID ARTHRITIS
     Route: 042
     Dates: start: 20131010

REACTIONS (19)
  - Gastrointestinal carcinoma [Not Recovered/Not Resolved]
  - Nasopharyngitis [Not Recovered/Not Resolved]
  - Influenza [Recovered/Resolved]
  - Gastroenteritis [Recovered/Resolved]
  - Dyspepsia [Not Recovered/Not Resolved]
  - Anaemia [Not Recovered/Not Resolved]
  - Bronchitis [Recovered/Resolved]
  - Lower respiratory tract infection [Recovered/Resolved]
  - Haemoglobin decreased [Unknown]
  - Cough [Not Recovered/Not Resolved]
  - Gastrooesophageal reflux disease [Not Recovered/Not Resolved]
  - Ear disorder [Not Recovered/Not Resolved]
  - Hypoaesthesia [Not Recovered/Not Resolved]
  - Dehydration [Unknown]
  - Diarrhoea haemorrhagic [Recovering/Resolving]
  - Paraesthesia [Not Recovered/Not Resolved]
  - Chronic obstructive pulmonary disease [Unknown]
  - Weight decreased [Unknown]
  - Malaise [Recovered/Resolved]

NARRATIVE: CASE EVENT DATE: 20140911
